FAERS Safety Report 17965276 (Version 2)
Quarter: 2020Q3

REPORT INFORMATION
  Report Type: Spontaneous
  Country: US (occurrence: US)
  Receive Date: 20200630
  Receipt Date: 20200703
  Transmission Date: 20201103
  Serious: Yes (Death)
  Sender: FDA-Public Use
  Company Number: US-MALLINCKRODT-T202003164

PATIENT

DRUGS (1)
  1. INOMAX [Suspect]
     Active Substance: NITRIC OXIDE
     Indication: COVID-19
     Dosage: UNK, INHALATION
     Route: 055

REACTIONS (2)
  - COVID-19 [Fatal]
  - Product use in unapproved indication [Unknown]
